FAERS Safety Report 15413332 (Version 2)
Quarter: 2018Q4

REPORT INFORMATION
  Report Type: Spontaneous
  Country: US (occurrence: US)
  Receive Date: 20180921
  Receipt Date: 20181130
  Transmission Date: 20190204
  Serious: No
  Sender: FDA-Public Use
  Company Number: US-PFIZER INC-2018382904

PATIENT
  Age: 63 Year
  Sex: Female

DRUGS (8)
  1. DOCETAXEL. [Suspect]
     Active Substance: DOCETAXEL
     Indication: BREAST CANCER METASTATIC
     Dosage: 75 MG, CYCLIC (04 CYCLES), EVERY 3 WEEKS
     Dates: start: 20161012, end: 20170322
  2. GLIPIZIDE. [Concomitant]
     Active Substance: GLIPIZIDE
     Dosage: UNK
     Dates: start: 2005
  3. LISINOPRIL. [Concomitant]
     Active Substance: LISINOPRIL
     Dosage: UNK
     Dates: start: 2010
  4. ANASTROZOLE. [Concomitant]
     Active Substance: ANASTROZOLE
     Indication: CHEMOTHERAPY
     Dosage: UNK
  5. DOCETAXEL. [Suspect]
     Active Substance: DOCETAXEL
     Indication: BREAST CANCER METASTATIC
     Dosage: 75 MG, CYCLIC (04 CYCLES), EVERY 3 WEEKS
     Dates: start: 20161012, end: 20170322
  6. DOCEFREZ [Suspect]
     Active Substance: DOCETAXEL ANHYDROUS
     Indication: BREAST CANCER METASTATIC
     Dosage: 75 MG, CYCLIC (04 CYCLES, EVERY 3 WEEKS)
     Dates: start: 20161012, end: 20170322
  7. CAPECITABINE. [Concomitant]
     Active Substance: CAPECITABINE
     Indication: CHEMOTHERAPY
     Dosage: UNK
  8. SIMVASTATIN. [Concomitant]
     Active Substance: SIMVASTATIN
     Dosage: UNK
     Dates: start: 2010

REACTIONS (5)
  - Alopecia [Not Recovered/Not Resolved]
  - Madarosis [Not Recovered/Not Resolved]
  - Hair texture abnormal [Not Recovered/Not Resolved]
  - Hair colour changes [Not Recovered/Not Resolved]
  - Hair disorder [Not Recovered/Not Resolved]

NARRATIVE: CASE EVENT DATE: 20161012
